FAERS Safety Report 21204372 (Version 1)
Quarter: 2022Q3

REPORT INFORMATION
  Report Type: Spontaneous
  Country: US (occurrence: US)
  Receive Date: 20220812
  Receipt Date: 20220812
  Transmission Date: 20221026
  Serious: No
  Sender: FDA-Public Use
  Company Number: US-SA-SAC20220808000814

PATIENT
  Age: 45 Year
  Sex: Male
  Weight: 100 kg

DRUGS (10)
  1. DUPIXENT [Suspect]
     Active Substance: DUPILUMAB
     Indication: Dermatitis atopic
     Dosage: 300 MG, QOW
     Route: 058
     Dates: start: 202104
  2. ELIDEL [Concomitant]
     Active Substance: PIMECROLIMUS
  3. IBUPROFEN [Concomitant]
     Active Substance: IBUPROFEN
  4. CLARITIN [Concomitant]
     Active Substance: LORATADINE
  5. VITAMIN C [Concomitant]
     Active Substance: ASCORBIC ACID
  6. EPINEPHRINE [Concomitant]
     Active Substance: EPINEPHRINE
  7. ZYRTEC [Concomitant]
     Active Substance: CETIRIZINE HYDROCHLORIDE
  8. VALTREX [Concomitant]
     Active Substance: VALACYCLOVIR HYDROCHLORIDE
  9. VITAMINS NOS [Concomitant]
     Active Substance: VITAMINS
  10. PFIZER-BIONTECH COVID-19 VACCINE [Concomitant]
     Active Substance: TOZINAMERAN

REACTIONS (1)
  - COVID-19 [Unknown]
